FAERS Safety Report 20189467 (Version 1)
Quarter: 2021Q4

REPORT INFORMATION
  Report Type: Spontaneous
  Country: JP (occurrence: JP)
  Receive Date: 20211215
  Receipt Date: 20211215
  Transmission Date: 20220304
  Serious: Yes (Other)
  Sender: FDA-Public Use
  Company Number: JP-DSJP-DSJ-2021-141522

PATIENT
  Age: 47 Year
  Sex: Male
  Weight: 70 kg

DRUGS (4)
  1. OLMESARTAN MEDOXOMIL [Suspect]
     Active Substance: OLMESARTAN MEDOXOMIL
     Indication: Hypertension
     Dosage: 5MG/DAY
     Route: 048
  2. FUROSEMIDE [Concomitant]
     Active Substance: FUROSEMIDE
     Dosage: 40MG/DAY
     Route: 048
  3. FUROSEMIDE [Concomitant]
     Active Substance: FUROSEMIDE
     Dosage: 20MG/DAY
     Route: 048
  4. FUROSEMIDE [Concomitant]
     Active Substance: FUROSEMIDE
     Dosage: 10MG/DAY
     Route: 048

REACTIONS (1)
  - Cardiac failure [Unknown]
